FAERS Safety Report 6178819-9 (Version None)
Quarter: 2009Q2

REPORT INFORMATION
  Report Type: 
  Country: None (occurrence: None)
  Receive Date: 20090504
  Receipt Date: 20090317
  Transmission Date: 20091009
  Serious: No
  Sender: FDA-Public Use
  Company Number: US-ALEXION-A200900215

PATIENT
  Sex: Male

DRUGS (14)
  1. SOLIRIS [Suspect]
     Indication: PAROXYSMAL NOCTURNAL HAEMOGLOBINURIA
     Dosage: 600 MG, QWK X4
     Route: 042
     Dates: start: 20071129, end: 20071219
  2. SOLIRIS [Suspect]
     Dosage: 900 MG Q2WK
     Route: 042
     Dates: start: 20071226
  3. COLOSTRUM [Concomitant]
     Dosage: UNK
     Route: 048
  4. IRON [Concomitant]
     Dosage: UNK
     Route: 048
  5. GLUCOSAMINE [Concomitant]
     Dosage: UNK
     Route: 048
  6. FOLIC ACID [Concomitant]
     Dosage: UNK
     Route: 048
  7. SAW PALMETTO                       /00833501/ [Concomitant]
     Dosage: UNK
     Route: 048
  8. VITAMIN A [Concomitant]
     Dosage: UNK
     Route: 048
  9. SELENIUM [Concomitant]
     Dosage: UNK
     Route: 048
  10. CHLORELLA VULGARIS [Concomitant]
     Dosage: UNK
     Route: 048
  11. LOVAZA [Concomitant]
     Dosage: UNK
     Route: 048
  12. ZINC [Concomitant]
     Dosage: UNK
     Route: 048
  13. CALCIUM CARBONATE W/MAGNESIUM [Concomitant]
     Dosage: UNK
     Route: 048
  14. BETACAROTENE [Concomitant]
     Dosage: UNK
     Route: 048

REACTIONS (3)
  - BLOOD GLUCOSE INCREASED [None]
  - FALL [None]
  - JOINT INJURY [None]
